FAERS Safety Report 4944522-3 (Version None)
Quarter: 2006Q1

REPORT INFORMATION
  Report Type: 
  Country: None (occurrence: None)
  Receive Date: 20060105
  Receipt Date: 20051108
  Transmission Date: 20060701
  Serious: Yes (Other)
  Sender: FDA-Public Use
  Company Number: 2005153858

PATIENT
  Sex: Female

DRUGS (1)
  1. ZMAX [Suspect]
     Indication: ILL-DEFINED DISORDER

REACTIONS (1)
  - ANAPHYLACTIC REACTION [None]
